FAERS Safety Report 8442481 (Version 3)
Quarter: 2012Q4

REPORT INFORMATION
  Report Type: 
  Country: JP (occurrence: JP)
  Receive Date: 20120306
  Receipt Date: 20121001
  Transmission Date: 20130627
  Serious: Yes (Other)
  Sender: FDA-Public Use
  Company Number: JP-JNJFOC-20120300795

PATIENT
  Age: 61 Year
  Sex: Female

DRUGS (2)
  1. TRAMCET [Suspect]
     Indication: PAIN
     Dosage: 0.5 dose, two per day
     Route: 048
     Dates: start: 20120226, end: 20120226
  2. TRAMCET [Suspect]
     Indication: PAIN
     Route: 048

REACTIONS (6)
  - Depressed level of consciousness [Recovered/Resolved]
  - Dysarthria [Unknown]
  - Vomiting [Recovered/Resolved]
  - Tension headache [Unknown]
  - Nausea [Recovered/Resolved]
  - Drug prescribing error [Unknown]
